FAERS Safety Report 13793476 (Version 1)
Quarter: 2017Q3

REPORT INFORMATION
  Report Type: Spontaneous
  Country: ZA (occurrence: ZA)
  Receive Date: 20170726
  Receipt Date: 20170726
  Transmission Date: 20171127
  Serious: Yes (Death)
  Sender: FDA-Public Use
  Company Number: ZA-IMPAX LABORATORIES, INC-2017-IPXL-02166

PATIENT
  Age: 9 Year
  Sex: Female

DRUGS (4)
  1. ADRENACLICK [Suspect]
     Active Substance: EPINEPHRINE
     Indication: HYPOTENSION
     Dosage: 0.05 ?G/KG, EVERY MIN
     Route: 042
  2. NOREPINEPHRINE. [Suspect]
     Active Substance: NOREPINEPHRINE
     Indication: HYPOTENSION
     Dosage: 0.05 ?G/KG, EVERY MIN
     Route: 042
  3. ADRENACLICK [Suspect]
     Active Substance: EPINEPHRINE
     Dosage: 0.2 ?G/KG, EVERY MIN
     Route: 042
  4. PROPRANOLOL HYDROCHLORIDE IR [Suspect]
     Active Substance: PROPRANOLOL HYDROCHLORIDE
     Indication: PRODUCT USED FOR UNKNOWN INDICATION
     Dosage: 4 MG/KG, DAILY
     Route: 065

REACTIONS (6)
  - Pseudomonal sepsis [Fatal]
  - Intestinal ischaemia [Fatal]
  - Hypovolaemic shock [Fatal]
  - Acinetobacter bacteraemia [Fatal]
  - Stress ulcer [Fatal]
  - Clostridium difficile colitis [Fatal]
